FAERS Safety Report 19473178 (Version 2)
Quarter: 2021Q3

REPORT INFORMATION
  Report Type: Report from Study
  Country: US (occurrence: US)
  Receive Date: 20210629
  Receipt Date: 20210714
  Transmission Date: 20211014
  Serious: No
  Sender: FDA-Public Use
  Company Number: US-ETON PHARMACEUTICALS, INC-2021ETO000078

PATIENT

DRUGS (3)
  1. ALKINDI SPRINKLE [Suspect]
     Active Substance: HYDROCORTISONE
     Dosage: 2 MG, BID
     Route: 048
     Dates: start: 20210528, end: 20210615
  2. ALKINDI SPRINKLE [Suspect]
     Active Substance: HYDROCORTISONE
     Dosage: 1 MG, QD
     Route: 048
     Dates: start: 20210528, end: 20210615
  3. ALKINDI SPRINKLE [Suspect]
     Active Substance: HYDROCORTISONE
     Indication: ADRENOCORTICAL INSUFFICIENCY NEONATAL
     Dosage: 0.5 MG, QD
     Route: 048
     Dates: start: 20210528, end: 20210615

REACTIONS (2)
  - Incorrect dose administered [Unknown]
  - Product use complaint [Unknown]
